FAERS Safety Report 7861062-2 (Version None)
Quarter: 2011Q4

REPORT INFORMATION
  Report Type: 
  Country: None (occurrence: None)
  Receive Date: 20111027
  Receipt Date: 20111018
  Transmission Date: 20120403
  Serious: Yes (Hospitalization)
  Sender: FDA-Public Use
  Company Number: JP-GLAXOSMITHKLINE-B0757122A

PATIENT
  Sex: Female
  Weight: 47 kg

DRUGS (15)
  1. ONEALFA [Concomitant]
     Dosage: 1MCG PER DAY
     Route: 048
  2. URSO 250 [Concomitant]
     Dosage: 900MG PER DAY
     Route: 048
     Dates: end: 20110523
  3. PROMACTA [Suspect]
     Dosage: 12.5MG PER DAY
     Route: 048
     Dates: start: 20110520, end: 20110522
  4. PROMACTA [Suspect]
     Dosage: 12.5MG TWICE PER DAY
     Route: 048
     Dates: start: 20110422, end: 20110519
  5. PROMACTA [Suspect]
     Indication: IDIOPATHIC THROMBOCYTOPENIC PURPURA
     Dosage: 12.5MG PER DAY
     Route: 048
     Dates: start: 20110408, end: 20110421
  6. PROMACTA [Suspect]
     Dosage: 12.5MG PER DAY
     Route: 048
     Dates: start: 20110624, end: 20110728
  7. PREDNISOLONE [Concomitant]
     Dosage: 10MG PER DAY
     Route: 048
     Dates: start: 20110528, end: 20110601
  8. URSO 250 [Concomitant]
     Dosage: 1200MG PER DAY
     Route: 048
     Dates: start: 20110524
  9. PREDNISOLONE [Concomitant]
     Indication: IDIOPATHIC THROMBOCYTOPENIC PURPURA
     Dosage: 3MG PER DAY
     Route: 048
     Dates: start: 20110602
  10. FAMOTIDINE [Concomitant]
     Indication: GASTRITIS PROPHYLAXIS
     Dosage: 20MG PER DAY
     Route: 048
  11. PROMACTA [Suspect]
     Route: 048
     Dates: start: 20110729, end: 20110811
  12. PREDNISOLONE [Concomitant]
     Indication: IDIOPATHIC THROMBOCYTOPENIC PURPURA
     Dosage: 5MG PER DAY
     Route: 048
     Dates: end: 20110527
  13. PREDNISOLONE [Concomitant]
     Dosage: 5MG PER DAY
     Route: 048
     Dates: start: 20110602
  14. PROMACTA [Suspect]
     Dosage: 12.5MG TWICE PER DAY
     Route: 048
     Dates: start: 20110523, end: 20110527
  15. PROMACTA [Suspect]
     Route: 048
     Dates: start: 20110812

REACTIONS (1)
  - MYOCARDIAL ISCHAEMIA [None]
